FAERS Safety Report 22125991 (Version 1)
Quarter: 2023Q1

REPORT INFORMATION
  Report Type: Spontaneous
  Country: US (occurrence: US)
  Receive Date: 20230322
  Receipt Date: 20230322
  Transmission Date: 20230417
  Serious: No
  Sender: FDA-Public Use
  Company Number: US-ALLERGAN-2216258US

PATIENT
  Sex: Female
  Weight: 52.163 kg

DRUGS (6)
  1. LATISSE [Suspect]
     Active Substance: BIMATOPROST
     Indication: Growth of eyelashes
     Dosage: 2 DF, QD
     Route: 061
  2. LATISSE [Suspect]
     Active Substance: BIMATOPROST
     Dosage: 2 DF, QD
     Route: 061
     Dates: start: 202112
  3. LATISSE [Suspect]
     Active Substance: BIMATOPROST
     Dosage: 2 DF, QD
     Route: 061
  4. LIPITOR [Concomitant]
     Active Substance: ATORVASTATIN CALCIUM
     Indication: Blood cholesterol increased
  5. EFFEXOR [Concomitant]
     Active Substance: VENLAFAXINE HYDROCHLORIDE
     Indication: Depression
  6. VITAMINS [Concomitant]
     Active Substance: VITAMINS
     Indication: Product used for unknown indication

REACTIONS (10)
  - Inappropriate schedule of product administration [Unknown]
  - Eyelids pruritus [Recovered/Resolved]
  - Eyelid pain [Unknown]
  - Eye pain [Recovered/Resolved]
  - Periorbital swelling [Unknown]
  - Eyelid exfoliation [Recovered/Resolved]
  - Ocular hyperaemia [Recovered/Resolved]
  - Eye pruritus [Recovered/Resolved]
  - Eye swelling [Recovered/Resolved]
  - Blepharal pigmentation [Recovered/Resolved]
